FAERS Safety Report 25310204 (Version 1)
Quarter: 2025Q2

REPORT INFORMATION
  Report Type: Spontaneous
  Country: US (occurrence: US)
  Receive Date: 20250514
  Receipt Date: 20250514
  Transmission Date: 20250716
  Serious: Yes (Other)
  Sender: COOPERSURGICAL
  Company Number: US-COOPERSURGICAL, INC.-2025CPS003743

PATIENT
  Age: 43 Year
  Sex: Female
  Weight: 86.168 kg

DRUGS (2)
  1. PARAGARD T 380A [Suspect]
     Active Substance: COPPER
     Indication: Contraception
  2. ^SULPHATE^ [Concomitant]
     Dates: start: 20190101

REACTIONS (2)
  - Uterine leiomyoma [Unknown]
  - Oophorectomy [Recovered/Resolved]

NARRATIVE: CASE EVENT DATE: 20220101
